FAERS Safety Report 8455327-3 (Version None)
Quarter: 2012Q2

REPORT INFORMATION
  Report Type: 
  Country: None (occurrence: None)
  Receive Date: 20120621
  Receipt Date: 20120619
  Transmission Date: 20120825
  Serious: Yes (Hospitalization, Other)
  Sender: FDA-Public Use
  Company Number: CO-PFIZER INC-2012148765

PATIENT
  Age: 13 Year
  Sex: Female

DRUGS (3)
  1. PEG 3350 AND ELECTROLYTES [Concomitant]
     Indication: INTESTINAL OBSTRUCTION
     Dosage: 1 SMALL CUP
     Dates: start: 20120501
  2. BISACODYL [Concomitant]
     Indication: INTESTINAL OBSTRUCTION
     Dosage: 1 PILL
     Dates: start: 20120501
  3. ALDACTONE [Suspect]
     Indication: BREAST DISORDER FEMALE
     Dosage: 100 MG, 1X/DAY
     Route: 048
     Dates: start: 20120201

REACTIONS (2)
  - HEADACHE [None]
  - INTESTINAL OBSTRUCTION [None]
